FAERS Safety Report 4844761-6 (Version None)
Quarter: 2005Q4

REPORT INFORMATION
  Report Type: 
  Country: None (occurrence: None)
  Receive Date: 20051205
  Receipt Date: 20051123
  Transmission Date: 20060501
  Serious: Yes (Hospitalization, Other)
  Sender: FDA-Public Use
  Company Number: PHRM2005FR03030

PATIENT
  Age: 70 Year
  Sex: Female
  Weight: 57 kg

DRUGS (4)
  1. LAMISIL [Suspect]
     Dosage: 250 MG, QD
     Route: 048
     Dates: start: 20050615, end: 20050912
  2. AMAREL [Suspect]
     Indication: GLYCOSURIA
     Dosage: 1 DF, QD
     Route: 048
     Dates: start: 20050825, end: 20050912
  3. NOROXIN [Suspect]
     Dosage: 400 MG, BID
     Route: 048
     Dates: start: 20050905, end: 20050912
  4. VISIPAQUE [Suspect]
     Dosage: 100 ML
     Route: 042
     Dates: start: 20050909, end: 20050909

REACTIONS (6)
  - BLOOD CREATININE INCREASED [None]
  - GLYCOSURIA [None]
  - IMMUNODEFICIENCY [None]
  - NAUSEA [None]
  - RENAL FAILURE [None]
  - TUBULOINTERSTITIAL NEPHRITIS [None]
